FAERS Safety Report 17917474 (Version 2)
Quarter: 2020Q2

REPORT INFORMATION
  Report Type: Spontaneous
  Country: US (occurrence: US)
  Receive Date: 20200619
  Receipt Date: 20200623
  Transmission Date: 20200714
  Serious: No
  Sender: FDA-Public Use
  Company Number: US-AMGEN INC.-USASP2020096514

PATIENT
  Age: 34 Year
  Sex: Female

DRUGS (4)
  1. ASPRIN [Concomitant]
     Active Substance: ASPIRIN
  2. AIMOVIG [Suspect]
     Active Substance: ERENUMAB-AOOE
     Indication: MIGRAINE
     Dosage: 70 MILLIGRAM
     Route: 065
     Dates: end: 20200503
  3. PLAQUENIL [Concomitant]
     Active Substance: HYDROXYCHLOROQUINE SULFATE
  4. METHOCARBAMOL. [Concomitant]
     Active Substance: METHOCARBAMOL

REACTIONS (5)
  - Hot flush [Unknown]
  - Drug ineffective [Unknown]
  - Hyperhidrosis [Unknown]
  - Migraine [Unknown]
  - Sleep disorder due to a general medical condition [Unknown]
